FAERS Safety Report 25616014 (Version 1)
Quarter: 2025Q3

REPORT INFORMATION
  Report Type: Spontaneous
  Country: CN (occurrence: CN)
  Receive Date: 20250729
  Receipt Date: 20250729
  Transmission Date: 20251020
  Serious: Yes (Hospitalization)
  Sender: ABBVIE
  Company Number: CN-ABBVIE-6387382

PATIENT
  Age: 42 Year
  Sex: Male

DRUGS (1)
  1. LOPINAVIR\RITONAVIR [Suspect]
     Active Substance: LOPINAVIR\RITONAVIR
     Indication: Immunodeficiency
     Dosage: TWO TABLET
     Route: 048
     Dates: start: 20231010, end: 20250611

REACTIONS (2)
  - Melaena [Unknown]
  - Pancreatitis [Recovering/Resolving]

NARRATIVE: CASE EVENT DATE: 20250611
